FAERS Safety Report 5798787-9 (Version None)
Quarter: 2008Q2

REPORT INFORMATION
  Report Type: 
  Country: None (occurrence: None)
  Receive Date: 20080630
  Receipt Date: 20080623
  Transmission Date: 20081010
  Serious: Yes (Other)
  Sender: FDA-Public Use
  Company Number: JUTA353-08 (COBALT'S ADR NO. ADR1322008)

PATIENT
  Age: 74 Year
  Sex: Female

DRUGS (1)
  1. CITALO-Q 10 MG CITALOPRAM [Suspect]
     Indication: APHASIA

REACTIONS (3)
  - ARRHYTHMIA [None]
  - DIZZINESS [None]
  - EPISTAXIS [None]
